FAERS Safety Report 24001054 (Version 1)
Quarter: 2024Q2

REPORT INFORMATION
  Report Type: Spontaneous
  Country: US (occurrence: US)
  Receive Date: 20240621
  Receipt Date: 20240621
  Transmission Date: 20240716
  Serious: No
  Sender: FDA-Public Use
  Company Number: US-002147023-NVSC2024US130098

PATIENT
  Age: 75 Year
  Sex: Male

DRUGS (1)
  1. LEQVIO [Suspect]
     Active Substance: INCLISIRAN SODIUM
     Indication: Hyperlipidaemia
     Dosage: 284 MG, OTHER (DAY 0/ DAY 90 AND EVERY 6MTHS FOLLOWING)
     Route: 058
     Dates: start: 20240403

REACTIONS (3)
  - Myalgia [Unknown]
  - Depression [Unknown]
  - Paranoia [Unknown]
